FAERS Safety Report 8799467 (Version 1)
Quarter: 2012Q4

REPORT INFORMATION
  Report Type: 
  Country: GB (occurrence: GB)
  Receive Date: 20120919
  Receipt Date: 20120919
  Transmission Date: 20130627
  Serious: Yes (Death, Other)
  Sender: FDA-Public Use
  Company Number: GB-MYLANLABS-2012S1018511

PATIENT

DRUGS (4)
  1. AZATHIOPRINE [Suspect]
     Route: 064
  2. FOLIC ACID [Concomitant]
     Route: 064
  3. LANSOPRAZOLE [Concomitant]
     Route: 064
  4. PREDNISOLONE [Concomitant]
     Route: 064

REACTIONS (7)
  - Cleft palate [Fatal]
  - Talipes [Fatal]
  - Congenital anomaly [Unknown]
  - Exposure during pregnancy [Fatal]
  - Foetal exposure during pregnancy [Fatal]
  - Developmental delay [Fatal]
  - Epilepsy [Fatal]
